FAERS Safety Report 4756122-9 (Version None)
Quarter: 2005Q3

REPORT INFORMATION
  Report Type: 
  Country: None (occurrence: None)
  Receive Date: 20050825
  Receipt Date: 20050705
  Transmission Date: 20060218
  Serious: Yes (Disabling)
  Sender: FDA-Public Use
  Company Number: WAES 0507USA00659

PATIENT
  Age: 51 Year
  Sex: Male
  Weight: 80.7403 kg

DRUGS (3)
  1. VYTORIN [Suspect]
     Indication: HYPERLIPIDAEMIA
     Dosage: 10-40 MG/DAILY/PO
     Route: 048
     Dates: start: 20041101
  2. VASOTEC RPD [Concomitant]
  3. ASPIRIN [Concomitant]

REACTIONS (1)
  - CATARACT [None]
